FAERS Safety Report 10008542 (Version 1)
Quarter: 2014Q1

REPORT INFORMATION
  Report Type: Spontaneous
  Country: US (occurrence: US)
  Receive Date: 20140312
  Receipt Date: 20140312
  Transmission Date: 20141002
  Serious: No
  Sender: FDA-Public Use
  Company Number: US-INCYTE CORPORATION-2012IN000129

PATIENT
  Age: 54 Year
  Sex: Male

DRUGS (5)
  1. JAKAFI [Suspect]
     Indication: MYELOFIBROSIS
     Dosage: 20 MG, BID
     Route: 048
     Dates: start: 20111231
  2. CLONAZEPAM [Concomitant]
     Dosage: UNKNOWN
  3. EFFEXOR [Concomitant]
     Dosage: UNKNOWN
  4. CRESTOR [Concomitant]
     Dosage: UNKNOWN
  5. ASPIRIN [Concomitant]
     Dosage: 81 MG, QD

REACTIONS (3)
  - Flushing [Not Recovered/Not Resolved]
  - Hyperhidrosis [Not Recovered/Not Resolved]
  - Dizziness [Unknown]
